FAERS Safety Report 17740121 (Version 4)
Quarter: 2020Q3

REPORT INFORMATION
  Report Type: Spontaneous
  Country: US (occurrence: US)
  Receive Date: 20200504
  Receipt Date: 20200723
  Transmission Date: 20201102
  Serious: No
  Sender: FDA-Public Use
  Company Number: US-HTU-2020US020475

PATIENT
  Sex: Male

DRUGS (1)
  1. VALCHLOR [Suspect]
     Active Substance: MECHLORETHAMINE
     Indication: CUTANEOUS T-CELL LYMPHOMA
     Dosage: UNK, QD
     Route: 061

REACTIONS (8)
  - Skin reaction [Unknown]
  - Application site swelling [Recovered/Resolved]
  - Application site discolouration [Not Recovered/Not Resolved]
  - Application site pruritus [Recovered/Resolved]
  - Application site dryness [Recovering/Resolving]
  - Application site hypertrophy [Unknown]
  - Application site erythema [Recovered/Resolved]
  - Pain of skin [Unknown]
